FAERS Safety Report 11130941 (Version 1)
Quarter: 2015Q2

REPORT INFORMATION
  Report Type: Report from Study
  Country: US (occurrence: US)
  Receive Date: 20150522
  Receipt Date: 20150522
  Transmission Date: 20150821
  Serious: Yes (Hospitalization)
  Sender: FDA-Public Use
  Company Number: US-BIOGENIDEC-2015BI065927

PATIENT
  Sex: Male

DRUGS (1)
  1. AVONEX [Suspect]
     Active Substance: INTERFERON BETA-1A
     Indication: MULTIPLE SCLEROSIS
     Route: 030
     Dates: start: 20131227, end: 20140701

REACTIONS (4)
  - Diplopia [Recovered/Resolved]
  - Drug effect decreased [Recovered/Resolved]
  - Memory impairment [Not Recovered/Not Resolved]
  - Muscle twitching [Recovered/Resolved]
